FAERS Safety Report 23090024 (Version 1)
Quarter: 2023Q4

REPORT INFORMATION
  Report Type: Spontaneous
  Country: GR (occurrence: GR)
  Receive Date: 20231020
  Receipt Date: 20231020
  Transmission Date: 20240110
  Serious: Yes (Death)
  Sender: FDA-Public Use
  Company Number: GR-PFIZER INC-PV202300169024

PATIENT
  Age: 24 Year
  Sex: Male

DRUGS (5)
  1. VORICONAZOLE [Suspect]
     Active Substance: VORICONAZOLE
     Indication: Fungaemia
     Dosage: UNK
  2. VALPROIC ACID [Concomitant]
     Active Substance: VALPROIC ACID
     Dosage: 1000 MG, 1X/DAY
  3. RISPERDAL [Concomitant]
     Active Substance: RISPERIDONE
     Dosage: 1/2-0-1
  4. RIVOTRIL [Concomitant]
     Active Substance: CLONAZEPAM
     Dosage: 1/4 -0-1/4
  5. AROMASIN [Concomitant]
     Active Substance: EXEMESTANE
     Dosage: 1X1

REACTIONS (1)
  - Death [Fatal]
